FAERS Safety Report 4390688-6 (Version None)
Quarter: 2004Q2

REPORT INFORMATION
  Report Type: 
  Country: None (occurrence: None)
  Receive Date: 20040630
  Receipt Date: 20040622
  Transmission Date: 20050107
  Serious: Yes (Other)
  Sender: FDA-Public Use
  Company Number: 200415568BWH

PATIENT
  Age: 64 Year
  Sex: Male

DRUGS (1)
  1. LEVITRA [Suspect]
     Indication: ERECTILE DYSFUNCTION
     Dosage: ORAL
     Route: 048
     Dates: start: 20040201, end: 20040301

REACTIONS (5)
  - CONDITION AGGRAVATED [None]
  - DIABETIC FOOT [None]
  - DIABETIC NEUROPATHY [None]
  - LEG AMPUTATION [None]
  - UNEXPECTED THERAPEUTIC DRUG EFFECT [None]
